FAERS Safety Report 7053731-1 (Version None)
Quarter: 2010Q4

REPORT INFORMATION
  Report Type: 
  Country: None (occurrence: None)
  Receive Date: 20101020
  Receipt Date: 20101013
  Transmission Date: 20110411
  Serious: Yes (Other)
  Sender: FDA-Public Use
  Company Number: A0883528A

PATIENT
  Sex: Female

DRUGS (14)
  1. ADVAIR DISKUS 100/50 [Suspect]
     Indication: CHRONIC OBSTRUCTIVE PULMONARY DISEASE
     Dosage: 1PUFF TWICE PER DAY
     Route: 055
     Dates: start: 20040101
  2. ADVAIR DISKUS 100/50 [Concomitant]
  3. ATENOLOL [Concomitant]
  4. ASPIRIN [Concomitant]
  5. PLAVIX [Concomitant]
  6. HYDROCHLOROTHIAZIDE [Concomitant]
  7. MIRAPEX [Concomitant]
  8. PROTONIX [Concomitant]
  9. SIMVASTATIN [Concomitant]
  10. SYNTHROID [Concomitant]
  11. NITROGLYCERIN [Concomitant]
  12. ISOSORBIDE [Concomitant]
  13. SPIRIVA [Concomitant]
  14. ALBUTEROL [Concomitant]

REACTIONS (8)
  - CORONARY ARTERY OCCLUSION [None]
  - GAIT DISTURBANCE [None]
  - HEADACHE [None]
  - MUSCLE SPASMS [None]
  - MYALGIA [None]
  - MYOCARDIAL INFARCTION [None]
  - STENT PLACEMENT [None]
  - THERAPEUTIC RESPONSE DECREASED [None]
